FAERS Safety Report 24728901 (Version 3)
Quarter: 2025Q2

REPORT INFORMATION
  Report Type: Spontaneous
  Country: US (occurrence: US)
  Receive Date: 20241212
  Receipt Date: 20250508
  Transmission Date: 20250717
  Serious: No
  Sender: ALEXION PHARMACEUTICALS
  Company Number: US-AstraZeneca-CH-00767521AP

PATIENT

DRUGS (1)
  1. BREZTRI [Suspect]
     Active Substance: BUDESONIDE\FORMOTEROL\GLYCOPYRROLATE

REACTIONS (5)
  - Body temperature [Unknown]
  - Incorrect dose administered [Unknown]
  - Aspartate aminotransferase decreased [Unknown]
  - Wrong technique in device usage process [Unknown]
  - Aspartate aminotransferase normal [Unknown]
